FAERS Safety Report 9577898 (Version 1)
Quarter: 2013Q4

REPORT INFORMATION
  Report Type: Spontaneous
  Country: US (occurrence: US)
  Receive Date: 20131001
  Receipt Date: 20131001
  Transmission Date: 20140711
  Serious: No
  Sender: FDA-Public Use
  Company Number: US-AMGEN-USASP2013010171

PATIENT
  Sex: Female
  Weight: 105.22 kg

DRUGS (7)
  1. ENBREL [Suspect]
     Indication: RHEUMATOID ARTHRITIS
     Dosage: UNK
  2. LANTUS [Concomitant]
     Dosage: UNK
  3. METHOTREXATE [Concomitant]
     Dosage: UNK
  4. LEUCOVORIN                         /00566701/ [Concomitant]
     Dosage: UNK
  5. ALEVE [Concomitant]
     Dosage: UNK
  6. VICODIN [Concomitant]
     Dosage: UNK
  7. LEVOTHYROXIN [Concomitant]
     Dosage: UNK

REACTIONS (1)
  - Therapeutic response decreased [Unknown]
